FAERS Safety Report 13023135 (Version 1)
Quarter: 2016Q4

REPORT INFORMATION
  Report Type: Spontaneous
  Country: US (occurrence: US)
  Receive Date: 20161213
  Receipt Date: 20161213
  Transmission Date: 20170207
  Serious: Yes (Hospitalization, Other)
  Sender: FDA-Public Use
  Company Number: US-LUNDBECK-DKLU2023695

PATIENT
  Age: 78 Year
  Sex: Male
  Weight: 75 kg

DRUGS (3)
  1. FLUDROCORTISONE [Concomitant]
     Active Substance: FLUDROCORTISONE
     Indication: PRODUCT USED FOR UNKNOWN INDICATION
     Route: 065
  2. NORTHERA [Suspect]
     Active Substance: DROXIDOPA
     Indication: AUTONOMIC NEUROPATHY
     Dosage: SCHEDULE A THEN SCHEDULE C TITRATING
     Route: 048
     Dates: start: 20161107
  3. NORTHERA [Suspect]
     Active Substance: DROXIDOPA
     Route: 048
     Dates: start: 20161206

REACTIONS (7)
  - Fall [Unknown]
  - Contusion [Unknown]
  - Pallor [Unknown]
  - Abasia [Unknown]
  - Blood pressure decreased [Unknown]
  - Joint swelling [Unknown]
  - Syncope [Unknown]

NARRATIVE: CASE EVENT DATE: 20161128
